FAERS Safety Report 7579343-9 (Version None)
Quarter: 2011Q2

REPORT INFORMATION
  Report Type: 
  Country: None (occurrence: None)
  Receive Date: 20110628
  Receipt Date: 20110627
  Transmission Date: 20111010
  Serious: Yes (Hospitalization)
  Sender: FDA-Public Use
  Company Number: US-CEPHALON-2011003358

PATIENT

DRUGS (1)
  1. TREANDA [Suspect]
     Route: 042
     Dates: start: 20110601

REACTIONS (1)
  - UNEVALUABLE EVENT [None]
